FAERS Safety Report 9343913 (Version 2)
Quarter: 2013Q3

REPORT INFORMATION
  Report Type: Spontaneous
  Country: DE (occurrence: DE)
  Receive Date: 20130612
  Receipt Date: 20130827
  Transmission Date: 20140515
  Serious: Yes (Other)
  Sender: FDA-Public Use
  Company Number: DE-RANBAXY-2013RR-70198

PATIENT
  Age: 34 Year
  Sex: Female

DRUGS (9)
  1. CIPROFLOXACIN [Suspect]
     Indication: BRONCHOPNEUMONIA
     Dosage: 500 MG, BID
     Route: 048
     Dates: start: 2010
  2. CIPROFLOXACIN [Suspect]
     Dosage: 500 MG, BID
     Route: 048
     Dates: start: 201105
  3. CLARITHROMYCIN [Suspect]
     Indication: BRONCHOPNEUMONIA
     Dosage: 250 MG, BID
     Route: 048
     Dates: start: 2010
  4. PIPERACILLIN/TAZOBACTAM [Suspect]
     Indication: BRONCHOPNEUMONIA
     Dosage: 4.5 G, TID
     Route: 042
     Dates: start: 2010
  5. PIPERACILLIN/TAZOBACTAM [Suspect]
     Dosage: 4.5 G, TID
     Route: 042
     Dates: start: 201102
  6. GENTAMICIN [Suspect]
     Indication: BRONCHOPNEUMONIA
     Dosage: 240 MG, QD
     Route: 042
     Dates: start: 2010
  7. GENTAMICIN [Suspect]
     Dosage: 240 MG, QD
     Route: 042
     Dates: start: 201102
  8. CEFTRIAXONE [Suspect]
     Indication: BRONCHOPNEUMONIA
     Dosage: 1 G, QD
     Route: 042
     Dates: start: 201012
  9. MEROPENEM [Suspect]
     Indication: BRONCHOPNEUMONIA
     Dosage: 1 G, TID
     Route: 042
     Dates: start: 201105

REACTIONS (2)
  - Pathogen resistance [Unknown]
  - Bronchopneumonia [Unknown]
